FAERS Safety Report 4837986-7 (Version None)
Quarter: 2005Q4

REPORT INFORMATION
  Report Type: 
  Country: None (occurrence: None)
  Receive Date: 20051128
  Receipt Date: 20050831
  Transmission Date: 20060501
  Serious: Yes (Other)
  Sender: FDA-Public Use
  Company Number: US-ROCHE-416206

PATIENT
  Age: 65 Year
  Sex: Female
  Weight: 49.9 kg

DRUGS (1)
  1. BONIVA [Suspect]
     Indication: OSTEOPOROSIS
     Route: 048
     Dates: start: 20050303

REACTIONS (2)
  - BLOOD TESTOSTERONE INCREASED [None]
  - HIRSUTISM [None]
